FAERS Safety Report 7449581-4 (Version None)
Quarter: 2011Q2

REPORT INFORMATION
  Report Type: 
  Country: None (occurrence: None)
  Receive Date: 20110502
  Receipt Date: 20110412
  Transmission Date: 20111010
  Serious: No
  Sender: FDA-Public Use
  Company Number: US-BAYER-2011-032407

PATIENT
  Age: 21 Year
  Sex: Female
  Weight: 67 kg

DRUGS (1)
  1. ALEVE (CAPLET) [Suspect]
     Indication: HEADACHE
     Dosage: 11000 MG, UNK
     Route: 048
     Dates: start: 20110412

REACTIONS (3)
  - VERTIGO [None]
  - MIGRAINE [None]
  - ABDOMINAL PAIN UPPER [None]
